FAERS Safety Report 9521268 (Version 1)
Quarter: 2013Q3

REPORT INFORMATION
  Report Type: Spontaneous
  Country: US (occurrence: US)
  Receive Date: 20130913
  Receipt Date: 20130913
  Transmission Date: 20140515
  Serious: No
  Sender: FDA-Public Use
  Company Number: US-JNJFOC-20130904503

PATIENT
  Age: 37 Year
  Sex: Male
  Weight: 104.33 kg

DRUGS (3)
  1. DURAGESIC [Suspect]
     Indication: PAIN
     Route: 062
  2. DURAGESIC [Suspect]
     Indication: PAIN
     Route: 062
  3. TOPROL [Concomitant]
     Indication: BLOOD PRESSURE
     Route: 065
     Dates: start: 2006

REACTIONS (7)
  - Hyperhidrosis [Not Recovered/Not Resolved]
  - Wrong technique in drug usage process [Unknown]
  - Urine odour abnormal [Not Recovered/Not Resolved]
  - Yawning [Recovered/Resolved]
  - Withdrawal syndrome [Recovered/Resolved]
  - Chills [Recovered/Resolved]
  - Product quality issue [Unknown]
